FAERS Safety Report 4610040-5 (Version None)
Quarter: 2005Q1

REPORT INFORMATION
  Report Type: 
  Country: None (occurrence: None)
  Receive Date: 20050315
  Receipt Date: 20050304
  Transmission Date: 20050727
  Serious: Yes (Life-Threatening)
  Sender: FDA-Public Use
  Company Number: 2005GB00187

PATIENT
  Age: 27 Year
  Sex: Male

DRUGS (1)
  1. SEROQUEL [Suspect]
     Dosage: 25 MG ONCE PO
     Route: 048
     Dates: start: 20050118

REACTIONS (3)
  - CARDIAC DISORDER [None]
  - SINUS ARREST [None]
  - SYNCOPE VASOVAGAL [None]
